FAERS Safety Report 24222427 (Version 1)
Quarter: 2024Q3

REPORT INFORMATION
  Report Type: Report from Study
  Country: US (occurrence: None)
  Receive Date: 20240819
  Receipt Date: 20240819
  Transmission Date: 20241016
  Serious: Yes (Other)
  Sender: ASTRAZENECA
  Company Number: 2022A372526

PATIENT
  Sex: Female
  Weight: 71.2 kg

DRUGS (9)
  1. FASENRA [Suspect]
     Active Substance: BENRALIZUMAB
     Indication: Asthma
     Route: 058
     Dates: start: 2018
  2. VITAMIN D [Concomitant]
     Active Substance: VITAMIN D NOS
  3. SINGULAIR [Concomitant]
     Active Substance: MONTELUKAST SODIUM
  4. HYDROXYZINE [Concomitant]
     Active Substance: HYDROXYZINE HYDROCHLORIDE
  5. LEVOTHYROXINE [Concomitant]
     Active Substance: LEVOTHYROXINE\LEVOTHYROXINE SODIUM
  6. CALCIUM\VITAMIN D [Concomitant]
     Active Substance: CALCIUM\VITAMIN D
  7. BIOTIN [Concomitant]
     Active Substance: BIOTIN
  8. PROAIR HFA [Concomitant]
     Active Substance: ALBUTEROL SULFATE
  9. PRAVASTATIN [Concomitant]
     Active Substance: PRAVASTATIN

REACTIONS (10)
  - Neoplasm [Unknown]
  - Vision blurred [Not Recovered/Not Resolved]
  - Fall [Unknown]
  - Ankle fracture [Unknown]
  - Lower limb fracture [Unknown]
  - Alopecia [Not Recovered/Not Resolved]
  - Muscular weakness [Unknown]
  - Dizziness [Unknown]
  - Arthralgia [Unknown]
  - Urticaria [Unknown]
